FAERS Safety Report 21073644 (Version 2)
Quarter: 2022Q3

REPORT INFORMATION
  Report Type: Report from Study
  Country: CN (occurrence: CN)
  Receive Date: 20220713
  Receipt Date: 20220729
  Transmission Date: 20221027
  Serious: Yes (Hospitalization, Other)
  Sender: FDA-Public Use
  Company Number: CN-NOVARTISPH-NVSC2022CN155476

PATIENT
  Age: 40 Year
  Sex: Male
  Weight: 85 kg

DRUGS (9)
  1. SECUKINUMAB [Suspect]
     Active Substance: SECUKINUMAB
     Indication: Psoriasis
     Dosage: 300 MG, QW
     Route: 058
     Dates: start: 20220608, end: 20220615
  2. PITAVASTATIN CALCIUM [Concomitant]
     Active Substance: PITAVASTATIN CALCIUM
     Indication: Blood cholesterol decreased
     Dosage: 1 MG, QD
     Route: 065
     Dates: start: 20220701
  3. BETAHISTINE [Concomitant]
     Active Substance: BETAHISTINE
     Indication: Dizziness
     Dosage: 6 MG, TID
     Route: 065
     Dates: start: 20220701
  4. FENOFIBRATE [Concomitant]
     Active Substance: FENOFIBRATE
     Indication: Blood cholesterol
     Dosage: 0.2 G, QD
     Route: 065
     Dates: start: 20220701
  5. OLMESARTAN MEDOXOMIL [Concomitant]
     Active Substance: OLMESARTAN MEDOXOMIL
     Indication: Blood pressure decreased
     Dosage: 20 MG, QD
     Route: 065
     Dates: start: 20220701
  6. METHYLCOBALAMIN [Concomitant]
     Active Substance: METHYLCOBALAMIN
     Indication: Neuralgia
     Dosage: 0.5 MG, TID
     Route: 065
     Dates: start: 20220701
  7. VITAMIN B [Concomitant]
     Active Substance: VITAMIN B
     Indication: Neuralgia
     Dosage: 10 MG, TID
     Route: 065
     Dates: start: 20220701
  8. METHYLCOBALAMIN [Concomitant]
     Active Substance: METHYLCOBALAMIN
     Indication: Neuralgia
     Dosage: 0.5 MG, TID
     Route: 065
     Dates: start: 20220701
  9. ACYCLOVIR [Concomitant]
     Active Substance: ACYCLOVIR
     Indication: Antiviral drug level above therapeutic
     Dosage: 0.5 MG, TID
     Route: 065
     Dates: start: 20220701

REACTIONS (8)
  - Vestibular neuronitis [Recovering/Resolving]
  - Hypokalaemia [Unknown]
  - Concomitant disease aggravated [Not Recovered/Not Resolved]
  - Dizziness [Recovering/Resolving]
  - Movement disorder [Recovering/Resolving]
  - Vertigo [Recovering/Resolving]
  - Vomiting [Recovering/Resolving]
  - Nausea [Recovering/Resolving]

NARRATIVE: CASE EVENT DATE: 20220618
